FAERS Safety Report 16327683 (Version 2)
Quarter: 2019Q3

REPORT INFORMATION
  Report Type: Report from Study
  Country: DE (occurrence: DE)
  Receive Date: 20190517
  Receipt Date: 20190712
  Transmission Date: 20191004
  Serious: No
  Sender: FDA-Public Use
  Company Number: PHHO2019DE004965

PATIENT
  Age: 48 Year
  Sex: Male
  Weight: 96 kg

DRUGS (1)
  1. AMN107 [Suspect]
     Active Substance: NILOTINIB
     Indication: CHRONIC MYELOID LEUKAEMIA
     Dosage: 300 MG, BID
     Route: 048
     Dates: start: 20150713, end: 20181009

REACTIONS (1)
  - Infarction [Not Recovered/Not Resolved]

NARRATIVE: CASE EVENT DATE: 20190502
